FAERS Safety Report 14747609 (Version 3)
Quarter: 2018Q3

REPORT INFORMATION
  Report Type: Spontaneous
  Country: US (occurrence: US)
  Receive Date: 20180411
  Receipt Date: 20180727
  Transmission Date: 20181010
  Serious: No
  Sender: FDA-Public Use
  Company Number: US-ACTELION-A-NJ2018-170039

PATIENT
  Age: 74 Year
  Sex: Female
  Weight: 48.73 kg

DRUGS (6)
  1. OPSUMIT [Suspect]
     Active Substance: MACITENTAN
     Indication: PULMONARY HYPERTENSION
     Dosage: 10 MG, QD
     Route: 048
  2. UPTRAVI [Suspect]
     Active Substance: SELEXIPAG
     Indication: PULMONARY HYPERTENSION
     Route: 048
  3. ADEMPAS [Concomitant]
     Active Substance: RIOCIGUAT
  4. OXYGEN. [Concomitant]
     Active Substance: OXYGEN
     Dosage: 2 L, PRN DURING THE DAY
  5. COUMADIN [Concomitant]
     Active Substance: WARFARIN SODIUM
  6. OXYGEN. [Concomitant]
     Active Substance: OXYGEN
     Dosage: 2 L, AT NIGHT

REACTIONS (4)
  - Decreased appetite [Unknown]
  - Fatigue [Unknown]
  - Hypoacusis [Unknown]
  - Walking distance test abnormal [Unknown]
